FAERS Safety Report 21934407 (Version 1)
Quarter: 2023Q1

REPORT INFORMATION
  Report Type: Spontaneous
  Country: CH (occurrence: CH)
  Receive Date: 20230201
  Receipt Date: 20230201
  Transmission Date: 20230418
  Serious: Yes (Death, Hospitalization, Other)
  Sender: FDA-Public Use
  Company Number: CH-AMGEN-CHESP2023012543

PATIENT

DRUGS (4)
  1. FILGRASTIM [Suspect]
     Active Substance: FILGRASTIM
     Indication: Haematopoietic stem cell mobilisation
     Dosage: 10 MICROGRAM/KILOGRAM, QD
     Route: 058
  2. IXAZOMIB [Suspect]
     Active Substance: IXAZOMIB
     Indication: Haematopoietic stem cell mobilisation
     Dosage: 4 MILLIGRAM
     Route: 065
  3. TREOSULFAN [Concomitant]
     Active Substance: TREOSULFAN
     Dosage: UNK
  4. MELPHALAN [Concomitant]
     Active Substance: MELPHALAN
     Dosage: UNK

REACTIONS (16)
  - Plasma cell myeloma [Fatal]
  - Viral infection [Unknown]
  - COVID-19 [Unknown]
  - Enterovirus infection [Unknown]
  - Rhinovirus infection [Unknown]
  - Infective thrombosis [Unknown]
  - Engraftment syndrome [Unknown]
  - White blood cell count decreased [Unknown]
  - Bacterial infection [Unknown]
  - Red blood cell transfusion [Unknown]
  - Abscess soft tissue [Unknown]
  - Platelet transfusion [Unknown]
  - Infection [Unknown]
  - Acute respiratory distress syndrome [Unknown]
  - Device related infection [Unknown]
  - Therapy partial responder [Unknown]
